FAERS Safety Report 6997951-0 (Version None)
Quarter: 2010Q3

REPORT INFORMATION
  Report Type: 
  Country: None (occurrence: None)
  Receive Date: 20100920
  Receipt Date: 20100914
  Transmission Date: 20110219
  Serious: Yes (Hospitalization, Other)
  Sender: FDA-Public Use
  Company Number: US-ELI_LILLY_AND_COMPANY-US201007001822

PATIENT
  Sex: Female
  Weight: 115.65 kg

DRUGS (7)
  1. BYETTA [Suspect]
     Dosage: 5 UG, 2/D
     Route: 058
     Dates: start: 20051206, end: 20060103
  2. BYETTA [Suspect]
     Dosage: 10 UG, 2/D
     Route: 058
     Dates: start: 20060103
  3. SULINDAC [Concomitant]
  4. LIPITOR [Concomitant]
  5. ACTOS [Concomitant]
  6. METFORMIN [Concomitant]
  7. LYRICA [Concomitant]

REACTIONS (2)
  - BLOOD CHOLESTEROL INCREASED [None]
  - PANCREATITIS [None]
